FAERS Safety Report 8613255-4 (Version None)
Quarter: 2012Q3

REPORT INFORMATION
  Report Type: 
  Country: None (occurrence: None)
  Receive Date: 20120822
  Receipt Date: 20120802
  Transmission Date: 20120928
  Serious: Yes (Hospitalization, Other)
  Sender: FDA-Public Use
  Company Number: JP-009507513-1208JPN001448

PATIENT

DRUGS (18)
  1. IRON SUCROSE [Concomitant]
     Indication: IRON DEFICIENCY ANAEMIA
     Route: 042
     Dates: start: 20120605, end: 20120608
  2. REBETOL [Suspect]
     Route: 048
     Dates: start: 20120618, end: 20120624
  3. AMLODIPINE BESYLATE [Concomitant]
     Indication: HYPERTENSION
     Dosage: 5 MG, ONCE
     Route: 048
  4. ENALAPRIL MALEATE [Concomitant]
     Indication: HYPERTENSION
     Dosage: 10 MG, ONCE
     Route: 048
  5. REBETOL [Suspect]
     Route: 048
     Dates: start: 20120615, end: 20120617
  6. TELAVIC [Suspect]
     Route: 048
     Dates: start: 20120618, end: 20120624
  7. BISOPROLOL FUMARATE [Concomitant]
     Indication: HYPERTENSION
     Route: 048
  8. REBETOL [Suspect]
     Indication: HEPATITIS C
     Route: 048
     Dates: start: 20120604, end: 20120604
  9. TELAVIC [Suspect]
     Indication: HEPATITIS C
     Route: 048
     Dates: start: 20120604, end: 20120615
  10. PEG-INTRON [Suspect]
     Indication: HEPATITIS C
     Dosage: 1.5MCG/KG/WEEK
     Route: 048
     Dates: start: 20120604, end: 20120624
  11. REBETOL [Suspect]
     Route: 048
     Dates: start: 20120605, end: 20120614
  12. PLAVIX [Concomitant]
     Indication: MYOCARDIAL INFARCTION
     Route: 048
  13. TELAVIC [Suspect]
     Route: 048
     Dates: start: 20120616, end: 20120617
  14. TRICHLORMETHIAZIDE [Concomitant]
     Indication: HYPERTENSION
     Route: 048
  15. ASPIRIN [Concomitant]
     Indication: MYOCARDIAL INFARCTION
     Dosage: 100 MG, ONCE
     Route: 048
  16. BASEN OD [Concomitant]
     Indication: DIABETES MELLITUS
     Route: 048
  17. PERYCIT [Concomitant]
     Indication: HYPERLIPIDAEMIA
     Route: 048
  18. CRESTOR [Concomitant]
     Indication: HYPERLIPIDAEMIA
     Route: 048

REACTIONS (2)
  - DECREASED APPETITE [None]
  - HAEMOGLOBIN DECREASED [None]
